FAERS Safety Report 4863870-9 (Version None)
Quarter: 2005Q4

REPORT INFORMATION
  Report Type: 
  Country: None (occurrence: None)
  Receive Date: 20051222
  Receipt Date: 20051028
  Transmission Date: 20060501
  Serious: No
  Sender: FDA-Public Use
  Company Number: US-GLAXOSMITHKLINE-A0580092A

PATIENT
  Age: 8 Year
  Sex: Female
  Weight: 29.2 kg

DRUGS (4)
  1. FLONASE [Suspect]
     Dosage: 1SPR PER DAY
     Route: 045
     Dates: start: 20041101
  2. FLOVENT [Suspect]
     Indication: ASTHMA
     Dosage: 1PUFF PER DAY
     Route: 055
     Dates: start: 20041101, end: 20051001
  3. ZYRTEC [Concomitant]
  4. FLOVENT [Concomitant]

REACTIONS (2)
  - CUSHINGOID [None]
  - WEIGHT INCREASED [None]
